FAERS Safety Report 16242298 (Version 1)
Quarter: 2019Q2

REPORT INFORMATION
  Report Type: Spontaneous
  Country: PT (occurrence: PT)
  Receive Date: 20190426
  Receipt Date: 20190426
  Transmission Date: 20190711
  Serious: Yes (Life-Threatening, Hospitalization)
  Sender: FDA-Public Use
  Company Number: PT-ACCORD-124398

PATIENT
  Age: 64 Year
  Sex: Female
  Weight: 80 kg

DRUGS (5)
  1. ONDANSETRON [Concomitant]
     Active Substance: ONDANSETRON
     Route: 042
     Dates: start: 20190103, end: 20190214
  2. DEXAMETHASONE. [Concomitant]
     Active Substance: DEXAMETHASONE
     Route: 042
     Dates: start: 20190103, end: 20190214
  3. PACLITAXEL/PACLITAXEL LIPOSOME [Concomitant]
     Indication: OVARIAN CANCER
     Route: 042
     Dates: start: 20190103, end: 20190214
  4. CLEMASTINE [Concomitant]
     Active Substance: CLEMASTINE
     Route: 042
     Dates: start: 20190103, end: 20190214
  5. CARBOPLATIN ACCORD [Suspect]
     Active Substance: CARBOPLATIN
     Indication: OVARIAN CANCER
     Dosage: 549 MG OF 21/21 DAY
     Route: 042
     Dates: start: 20190103, end: 20190214

REACTIONS (2)
  - Hypoxia [Recovered/Resolved]
  - Hypotension [Recovered/Resolved]

NARRATIVE: CASE EVENT DATE: 20190124
